FAERS Safety Report 8263823 (Version 4)
Quarter: 2012Q4

REPORT INFORMATION
  Report Type: 
  Country: CA (occurrence: CA)
  Receive Date: 20111128
  Receipt Date: 20121106
  Transmission Date: 20130627
  Serious: Yes (Hospitalization, Other)
  Sender: FDA-Public Use
  Company Number: CA-ELI_LILLY_AND_COMPANY-CA201111005143

PATIENT
  Age: 71 Year
  Sex: Female

DRUGS (16)
  1. FORTEO [Suspect]
     Indication: OSTEOPOROSIS
     Dosage: 20 ug, qd
     Route: 058
     Dates: start: 20110331, end: 20110601
  2. FORTEO [Suspect]
     Dosage: 20 ug, qd
     Route: 058
     Dates: start: 20110614, end: 20110901
  3. FORTEO [Suspect]
     Dosage: 20 ug, qd
     Route: 058
     Dates: start: 20110914
  4. PLAQUENIL [Concomitant]
     Dosage: 400 mg, UNK
  5. FENTANYL [Concomitant]
     Dosage: 15 mg, 2/W
  6. CALCIUM [Concomitant]
     Dosage: 1800 mg, UNK
  7. ZINC [Concomitant]
     Dosage: 25 mg, UNK
  8. MULTIVITAMIN [Concomitant]
  9. METAMUCIL [Concomitant]
  10. BRICANYL [Concomitant]
     Route: 055
  11. METHOTREXATE [Concomitant]
     Dosage: 25 mg, weekly (1/W)
  12. FOLIC ACID [Concomitant]
     Dosage: 5 mg, weekly (1/W)
  13. VITAMIN D NOS [Concomitant]
     Dosage: 50000 IU, weekly (1/W)
  14. RISEDRONATE SODIUM [Concomitant]
     Dosage: 35 mg, weekly (1/W)
  15. FUROSEMIDE [Concomitant]
     Dosage: UNK, prn
  16. LASIX [Concomitant]
     Dosage: UNK, prn

REACTIONS (8)
  - Oesophageal achalasia [Not Recovered/Not Resolved]
  - Abnormal loss of weight [Unknown]
  - Post procedural complication [Unknown]
  - Gastrooesophageal sphincter insufficiency [Unknown]
  - Starvation [Unknown]
  - Drug hypersensitivity [Unknown]
  - Food allergy [Unknown]
  - Weight increased [Unknown]
